FAERS Safety Report 5461536-8 (Version None)
Quarter: 2007Q3

REPORT INFORMATION
  Report Type: 
  Country: None (occurrence: None)
  Receive Date: 20070920
  Receipt Date: 20061101
  Transmission Date: 20080115
  Serious: No
  Sender: FDA-Public Use
  Company Number: A0625504A

PATIENT
  Age: 44 Year
  Sex: Female

DRUGS (1)
  1. ABREVA [Suspect]
     Dates: start: 20061030, end: 20061031

REACTIONS (1)
  - HEADACHE [None]
